FAERS Safety Report 19279136 (Version 1)
Quarter: 2021Q2

REPORT INFORMATION
  Report Type: Spontaneous
  Country: GB (occurrence: GB)
  Receive Date: 20210520
  Receipt Date: 20210520
  Transmission Date: 20210717
  Serious: Yes (Life-Threatening, Hospitalization, Other)
  Sender: FDA-Public Use
  Company Number: GB-MYLANLABS-2021M1028287

PATIENT
  Age: 17 Year
  Sex: Male

DRUGS (7)
  1. EMERADE [Suspect]
     Active Substance: EPINEPHRINE BITARTRATE
     Indication: ANAPHYLACTIC REACTION
     Dosage: 4 DOSES ADMINISTERED OVER 20MIN,ALTERNATING LIMBS FOR INJECTION
     Route: 030
  2. HYDROCORTISONE. [Suspect]
     Active Substance: HYDROCORTISONE
     Indication: ANAPHYLACTIC REACTION
     Dosage: UNK
     Route: 042
  3. SALBUTAMOL [Suspect]
     Active Substance: ALBUTEROL
     Indication: ANAPHYLACTIC REACTION
     Dosage: UNK
     Route: 055
  4. SALINE                             /00075401/ [Suspect]
     Active Substance: SODIUM CHLORIDE
     Indication: ANAPHYLACTIC REACTION
     Dosage: 500 MILLILITER
     Route: 042
  5. ADRENALINE                         /00003901/ [Suspect]
     Active Substance: EPINEPHRINE
     Indication: ANAPHYLACTIC REACTION
     Dosage: 0.1 UG/KG/MIN 40 MINUTES AFTER ONSET,PERIPHERAL ADRENALINE INFUSION
     Route: 042
  6. EMERADE [Suspect]
     Active Substance: EPINEPHRINE BITARTRATE
     Dosage: 4 DOSES OF IM ADRENALINE(AUTO?INJECTOR)ADMINISTERED OVER 20 MINUTES
     Route: 030
  7. CHLORPHENAMINE [Suspect]
     Active Substance: CHLORPHENIRAMINE MALEATE
     Indication: ANAPHYLACTIC REACTION
     Dosage: UNK
     Route: 042

REACTIONS (4)
  - Anaphylactic reaction [Unknown]
  - Bronchospasm [Unknown]
  - Drug ineffective [Recovered/Resolved]
  - Tachycardia [Unknown]
